FAERS Safety Report 4745028-7 (Version None)
Quarter: 2005Q3

REPORT INFORMATION
  Report Type: 
  Country: None (occurrence: None)
  Receive Date: 20050815
  Receipt Date: 20050811
  Transmission Date: 20060218
  Serious: Yes (Death, Hospitalization)
  Sender: FDA-Public Use
  Company Number: PHRM2005FR02270

PATIENT
  Age: 83 Year
  Sex: Female
  Weight: 67 kg

DRUGS (6)
  1. TAREG [Suspect]
     Indication: HYPERTENSION
     Dosage: 1 TAB/DAY
     Route: 048
     Dates: end: 20050207
  2. AUGMENTIN '125' [Suspect]
     Indication: LUNG DISORDER
     Dosage: 1 G, TID
     Route: 048
     Dates: start: 20050208, end: 20050217
  3. MONICOR L.P. [Suspect]
     Indication: ISCHAEMIC CARDIOMYOPATHY
     Dosage: 40 MG/DAY
     Route: 048
  4. SPASFON-LYOC [Suspect]
     Dosage: 160 MG, TID
     Route: 048
     Dates: start: 20050211, end: 20050214
  5. COZAAR [Suspect]
     Indication: HYPERTENSION
     Dosage: 50 MG/DAY
     Route: 048
     Dates: start: 20050209, end: 20050210
  6. PREVISCAN [Suspect]
     Indication: ISCHAEMIC CARDIOMYOPATHY
     Dosage: 10 MG/DAY
     Route: 048
     Dates: end: 20050211

REACTIONS (6)
  - CARDIAC ARREST [None]
  - COUGH [None]
  - INTERNATIONAL NORMALISED RATIO INCREASED [None]
  - LUNG DISORDER [None]
  - MUSCLE HAEMORRHAGE [None]
  - PLATELET COUNT DECREASED [None]
